FAERS Safety Report 9780357 (Version 6)
Quarter: 2015Q3

REPORT INFORMATION
  Report Type: Report from Study
  Country: CA (occurrence: CA)
  Receive Date: 20131224
  Receipt Date: 20150824
  Transmission Date: 20151125
  Serious: Yes (Other)
  Sender: FDA-Public Use
  Company Number: CA-ROCHE-1254427

PATIENT
  Age: 81 Year
  Sex: Female

DRUGS (16)
  1. TYLENOL [Concomitant]
     Active Substance: ACETAMINOPHEN
     Indication: PREMEDICATION
     Route: 048
     Dates: start: 20130711
  2. MELOXICAM. [Concomitant]
     Active Substance: MELOXICAM
  3. METFORMIN [Concomitant]
     Active Substance: METFORMIN HYDROCHLORIDE
  4. RITUXAN [Suspect]
     Active Substance: RITUXIMAB
     Indication: RHEUMATOID ARTHRITIS
     Dosage: LAST DOSE PRIOR TO SAE 25/JUL/2013.
     Route: 042
     Dates: start: 20130711
  5. DOXAZOSIN [Concomitant]
     Active Substance: DOXAZOSIN\DOXAZOSIN MESYLATE
  6. LANSOPRAZOLE. [Concomitant]
     Active Substance: LANSOPRAZOLE
  7. GLICLAZIDE [Concomitant]
     Active Substance: GLICLAZIDE
  8. SOLU-MEDROL [Concomitant]
     Active Substance: METHYLPREDNISOLONE SODIUM SUCCINATE
     Indication: PREMEDICATION
     Route: 042
     Dates: start: 20130711
  9. LORAZEPAM. [Concomitant]
     Active Substance: LORAZEPAM
  10. ATENOLOL. [Concomitant]
     Active Substance: ATENOLOL
  11. GABAPENTIN. [Concomitant]
     Active Substance: GABAPENTIN
  12. BENADRYL [Concomitant]
     Active Substance: DIPHENHYDRAMINE HYDROCHLORIDE
     Indication: PREMEDICATION
     Route: 048
     Dates: start: 20130711
  13. PLAVIX [Concomitant]
     Active Substance: CLOPIDOGREL BISULFATE
  14. ACTONEL [Concomitant]
     Active Substance: RISEDRONATE SODIUM
  15. ATACAND [Concomitant]
     Active Substance: CANDESARTAN CILEXETIL
  16. NITRO-DUR PATCH [Concomitant]

REACTIONS (5)
  - Pain in extremity [Not Recovered/Not Resolved]
  - Spinal column stenosis [Not Recovered/Not Resolved]
  - Arthralgia [Not Recovered/Not Resolved]
  - Blood pressure increased [Unknown]
  - Infusion related reaction [Recovered/Resolved]

NARRATIVE: CASE EVENT DATE: 20130725
